FAERS Safety Report 7080944-5 (Version None)
Quarter: 2010Q4

REPORT INFORMATION
  Report Type: 
  Country: None (occurrence: None)
  Receive Date: 20101103
  Receipt Date: 20101029
  Transmission Date: 20110411
  Serious: No
  Sender: FDA-Public Use
  Company Number: US-TYCO HEALTHCARE/MALLINCKRODT-T201002197

PATIENT
  Age: 55 Year
  Sex: Female
  Weight: 63.492 kg

DRUGS (5)
  1. FENTANYL CITRATE [Suspect]
     Indication: COMPLEX REGIONAL PAIN SYNDROME
     Dosage: 1 LOZENGE, BID
     Route: 048
     Dates: start: 20100814, end: 20100903
  2. ROXICODONE [Concomitant]
     Indication: PAIN
     Dosage: 1 TABLET 2-3 TIMES PER DAY
     Route: 048
  3. ACTIQ [Concomitant]
  4. SYNTHROID [Concomitant]
     Indication: HYPOTHYROIDISM
     Dosage: 1 TABLET, QD
     Route: 048
  5. MULTI-VITAMINS [Concomitant]
     Dosage: 1 TABLET QD
     Route: 048

REACTIONS (1)
  - HAEMATOCHEZIA [None]
